FAERS Safety Report 16962062 (Version 1)
Quarter: 2019Q4

REPORT INFORMATION
  Report Type: Spontaneous
  Country: US (occurrence: US)
  Receive Date: 20191024
  Receipt Date: 20191024
  Transmission Date: 20200122
  Serious: No
  Sender: FDA-Public Use
  Company Number: None

PATIENT
  Age: 58 Year
  Sex: Male
  Weight: 63 kg

DRUGS (18)
  1. PREDNISONE. [Concomitant]
     Active Substance: PREDNISONE
  2. MAGNESIUM OXIDE. [Concomitant]
     Active Substance: MAGNESIUM OXIDE
  3. PRENATAL VITAMIN [Concomitant]
     Active Substance: VITAMINS
  4. MYCOPHENOLATE [Concomitant]
     Active Substance: MYCOPHENOLIC ACID
  5. SINGULAIR [Concomitant]
     Active Substance: MONTELUKAST SODIUM
  6. JANUVIA [Concomitant]
     Active Substance: SITAGLIPTIN PHOSPHATE
  7. ATOVAQUONE. [Concomitant]
     Active Substance: ATOVAQUONE
  8. ALENDRONATE [Concomitant]
     Active Substance: ALENDRONATE SODIUM
  9. PRIVIGEN [Concomitant]
     Active Substance: HUMAN IMMUNOGLOBULIN G
     Indication: IMMUNOSUPPRESSION
     Dosage: ?          OTHER FREQUENCY:MONTHLY;??
     Route: 042
     Dates: start: 20191022, end: 20191022
  10. PRAVASTATIN. [Concomitant]
     Active Substance: PRAVASTATIN
  11. VALCYTE [Concomitant]
     Active Substance: VALGANCICLOVIR HYDROCHLORIDE
  12. CRESEMBA [Concomitant]
     Active Substance: ISAVUCONAZONIUM SULFATE
  13. VITAMIN D3 [Concomitant]
     Active Substance: CHOLECALCIFEROL
  14. TACROLIMUS. [Concomitant]
     Active Substance: TACROLIMUS
  15. OMEPRAZOLE. [Concomitant]
     Active Substance: OMEPRAZOLE
  16. ELIQUIS [Concomitant]
     Active Substance: APIXABAN
  17. AZITHROMYCIN ANHYDROUS. [Concomitant]
     Active Substance: AZITHROMYCIN ANHYDROUS
  18. CALCIUM WITH VITAMIN D [Concomitant]
     Active Substance: CALCIUM\VITAMIN D

REACTIONS (6)
  - Headache [None]
  - Musculoskeletal pain [None]
  - Pain in jaw [None]
  - Pain in extremity [None]
  - Spinal pain [None]
  - Back pain [None]

NARRATIVE: CASE EVENT DATE: 20191022
